FAERS Safety Report 9457813 (Version 1)
Quarter: 2013Q3

REPORT INFORMATION
  Report Type: Spontaneous
  Country: US (occurrence: None)
  Receive Date: 20130812
  Receipt Date: 20130812
  Transmission Date: 20140515
  Serious: No
  Sender: FDA-Public Use
  Company Number: None

PATIENT
  Age: 76 Year
  Sex: Male
  Weight: 82.73 kg

DRUGS (9)
  1. BEVACIZUMAB (RHUMAB VEGF) (704865) [Suspect]
  2. IRINOTECAN [Suspect]
  3. OXALIPLATIN (ELOXATIN) [Suspect]
  4. ACE INHIBITOR [Concomitant]
  5. ALPHA BLOCKER AGENT [Concomitant]
  6. ATENOLOL [Concomitant]
  7. COMPAZINE [Concomitant]
  8. COUMADIN [Concomitant]
  9. HYDROCHLOROTHIAZIDE [Concomitant]

REACTIONS (3)
  - Skin mass [None]
  - Pulmonary mass [None]
  - Neutrophil count decreased [None]
